FAERS Safety Report 25144901 (Version 2)
Quarter: 2025Q3

REPORT INFORMATION
  Report Type: Spontaneous
  Country: US (occurrence: US)
  Receive Date: 20250401
  Receipt Date: 20250723
  Transmission Date: 20251021
  Serious: Yes (Hospitalization)
  Sender: BOEHRINGER INGELHEIM
  Company Number: US-Komodo Health-a23aa000006c79tAAA

PATIENT
  Age: 56 Year
  Sex: Male

DRUGS (1)
  1. JARDIANCE [Suspect]
     Active Substance: EMPAGLIFLOZIN
     Indication: Type 2 diabetes mellitus
     Dates: start: 202411, end: 202412

REACTIONS (3)
  - Skin ulcer [Not Recovered/Not Resolved]
  - Foot amputation [Unknown]
  - Groin abscess [Recovered/Resolved]

NARRATIVE: CASE EVENT DATE: 20241101
